FAERS Safety Report 18021090 (Version 1)
Quarter: 2020Q3

REPORT INFORMATION
  Report Type: Spontaneous
  Country: US (occurrence: US)
  Receive Date: 20200714
  Receipt Date: 20200714
  Transmission Date: 20201103
  Serious: Yes (Death, Other)
  Sender: FDA-Public Use
  Company Number: US-ENDO PHARMACEUTICALS INC-2020-004364

PATIENT
  Age: 54 Year

DRUGS (1)
  1. PERCOCET [Suspect]
     Active Substance: ACETAMINOPHEN\OXYCODONE HYDROCHLORIDE
     Indication: PRODUCT USED FOR UNKNOWN INDICATION
     Dosage: UNK UNKNOWN, UNKNOWN
     Route: 048

REACTIONS (15)
  - Blood potassium abnormal [Unknown]
  - Hypoxia [Unknown]
  - Acidosis [Unknown]
  - Coma [Unknown]
  - Somnolence [Unknown]
  - Blood creatinine increased [Unknown]
  - Confusional state [Unknown]
  - Alanine aminotransferase increased [Unknown]
  - Lethargy [Unknown]
  - Hyperglycaemia [Unknown]
  - Aspartate aminotransferase increased [Unknown]
  - Prothrombin time prolonged [Unknown]
  - Hypotension [Unknown]
  - Hypoglycaemia [Unknown]
  - Death [Fatal]

NARRATIVE: CASE EVENT DATE: 201309
